FAERS Safety Report 5693081-9 (Version None)
Quarter: 2008Q2

REPORT INFORMATION
  Report Type: 
  Country: None (occurrence: None)
  Receive Date: 20080402
  Receipt Date: 20080402
  Transmission Date: 20081010
  Serious: Yes (Hospitalization)
  Sender: FDA-Public Use
  Company Number: None

PATIENT
  Age: 53 Year
  Sex: Female
  Weight: 76.2043 kg

DRUGS (1)
  1. ZOLPIDEM [Suspect]
     Indication: INSOMNIA
     Dosage: 10MG. ONCE @HS ORAL
     Route: 048
     Dates: start: 20080229, end: 20080317

REACTIONS (3)
  - AMNESIA [None]
  - CONFUSIONAL STATE [None]
  - DIPLOPIA [None]
